FAERS Safety Report 6162176-8 (Version None)
Quarter: 2009Q2

REPORT INFORMATION
  Report Type: 
  Country: None (occurrence: None)
  Receive Date: 20090421
  Receipt Date: 20070921
  Transmission Date: 20091009
  Serious: No
  Sender: FDA-Public Use
  Company Number: US-SOLVAY-00207034184

PATIENT
  Age: 64 Year
  Sex: Female

DRUGS (2)
  1. SPIRONOLACTONE [Concomitant]
     Indication: HORMONE SUPPRESSION THERAPY
     Dosage: DAILY DOSE:  UNKNOWN
     Route: 048
  2. ANDROGEL [Suspect]
     Indication: ACCIDENTAL EXPOSURE
     Dosage: DAILY DOSE: 7.5 GRAM(S) VIA PUMP
     Route: 062
     Dates: start: 20060201

REACTIONS (1)
  - ALOPECIA [None]
